FAERS Safety Report 24797943 (Version 1)
Quarter: 2025Q1

REPORT INFORMATION
  Report Type: Spontaneous
  Country: US (occurrence: US)
  Receive Date: 20250102
  Receipt Date: 20250102
  Transmission Date: 20250409
  Serious: No
  Sender: CHATTEM
  Company Number: US-OPELLA-2024OHG041306

PATIENT
  Age: 80 Year
  Sex: Male

DRUGS (18)
  1. FEXOFENADINE [Suspect]
     Active Substance: FEXOFENADINE HYDROCHLORIDE
     Indication: Eczema
  2. FEXOFENADINE [Suspect]
     Active Substance: FEXOFENADINE HYDROCHLORIDE
     Indication: Lichenoid keratosis
  3. DIPHENHYDRAMINE [Suspect]
     Active Substance: DIPHENHYDRAMINE
     Indication: Lichenoid keratosis
  4. DIPHENHYDRAMINE [Suspect]
     Active Substance: DIPHENHYDRAMINE
     Indication: Eczema
  5. TACROLIMUS [Concomitant]
     Active Substance: TACROLIMUS
     Indication: Lichenoid keratosis
  6. TACROLIMUS [Concomitant]
     Active Substance: TACROLIMUS
     Indication: Eczema
  7. BETAMETHASONE [Concomitant]
     Active Substance: BETAMETHASONE
     Indication: Lichenoid keratosis
  8. BETAMETHASONE [Concomitant]
     Active Substance: BETAMETHASONE
     Indication: Eczema
  9. PREDNISONE [Concomitant]
     Active Substance: PREDNISONE
     Indication: Lichenoid keratosis
  10. PREDNISONE [Concomitant]
     Active Substance: PREDNISONE
     Indication: Eczema
  11. PREDNISONE [Concomitant]
     Active Substance: PREDNISONE
     Indication: Lichenoid keratosis
  12. PREDNISONE [Concomitant]
     Active Substance: PREDNISONE
     Indication: Eczema
  13. DUPILUMAB [Concomitant]
     Active Substance: DUPILUMAB
     Indication: Lichenoid keratosis
  14. DUPILUMAB [Concomitant]
     Active Substance: DUPILUMAB
     Indication: Eczema
  15. CETIRIZINE [Concomitant]
     Active Substance: CETIRIZINE HYDROCHLORIDE
     Indication: Lichenoid keratosis
  16. CETIRIZINE [Concomitant]
     Active Substance: CETIRIZINE HYDROCHLORIDE
     Indication: Eczema
  17. TRIAMCINOLONE [Concomitant]
     Active Substance: TRIAMCINOLONE
     Indication: Lichenoid keratosis
  18. TRIAMCINOLONE [Concomitant]
     Active Substance: TRIAMCINOLONE
     Indication: Eczema

REACTIONS (2)
  - Off label use [Unknown]
  - No adverse event [Unknown]
